FAERS Safety Report 10620927 (Version 1)
Quarter: 2014Q4

REPORT INFORMATION
  Report Type: Spontaneous
  Country: CN (occurrence: CN)
  Receive Date: 20141202
  Receipt Date: 20141202
  Transmission Date: 20150529
  Serious: Yes (Other)
  Sender: FDA-Public Use
  Company Number: PHHY2014CN154213

PATIENT
  Age: 32 Year
  Sex: Female

DRUGS (1)
  1. THIAMAZOLE [Suspect]
     Active Substance: METHIMAZOLE
     Indication: BASEDOW^S DISEASE
     Dosage: 15 MG, QD
     Route: 065

REACTIONS (10)
  - Oropharyngeal pain [Recovered/Resolved]
  - Pancytopenia [Recovered/Resolved]
  - Staphylococcal infection [Unknown]
  - Plasmacytosis [Recovered/Resolved]
  - Bone marrow failure [Recovered/Resolved]
  - Pyrexia [Recovered/Resolved]
  - Goitre [Unknown]
  - Anaemia [Recovered/Resolved]
  - Tonsillar hypertrophy [Unknown]
  - Agranulocytosis [Recovered/Resolved]
